FAERS Safety Report 21715624 (Version 2)
Quarter: 2023Q1

REPORT INFORMATION
  Report Type: Spontaneous
  Country: JP (occurrence: JP)
  Receive Date: 20221212
  Receipt Date: 20230206
  Transmission Date: 20230418
  Serious: Yes (Life-Threatening, Hospitalization)
  Sender: FDA-Public Use
  Company Number: JP-MYLANLABS-2022M1136204

PATIENT
  Age: 35 Year
  Sex: Female

DRUGS (2)
  1. EPIPEN [Suspect]
     Active Substance: EPINEPHRINE
     Indication: Anaphylactic reaction
     Dosage: 0.3 MILLIGRAM, QD
     Route: 030
     Dates: start: 20221205, end: 20221205
  2. EPIPEN [Suspect]
     Active Substance: EPINEPHRINE
     Indication: Dyspnoea

REACTIONS (3)
  - Device failure [Unknown]
  - Therapeutic product effect incomplete [Unknown]
  - Expired product administered [Unknown]

NARRATIVE: CASE EVENT DATE: 20221205
